FAERS Safety Report 17772186 (Version 1)
Quarter: 2020Q2

REPORT INFORMATION
  Report Type: Report from Study
  Country: US (occurrence: US)
  Receive Date: 20200512
  Receipt Date: 20200512
  Transmission Date: 20200714
  Serious: Yes (Hospitalization)
  Sender: FDA-Public Use
  Company Number: US-GILEAD-2020-0464417

PATIENT
  Age: 68 Year
  Sex: Female

DRUGS (14)
  1. IDELALISIB [Suspect]
     Active Substance: IDELALISIB
     Indication: CHRONIC LYMPHOCYTIC LEUKAEMIA
     Dosage: 150 MG, BID
     Route: 048
     Dates: start: 20190409
  2. GLIPIZIDE. [Concomitant]
     Active Substance: GLIPIZIDE
  3. ONDANSETRON [Concomitant]
     Active Substance: ONDANSETRON
  4. ASPIRIN (E.C.) [Concomitant]
     Active Substance: ASPIRIN
  5. PANTOPRAZOLE [Concomitant]
     Active Substance: PANTOPRAZOLE
  6. METOPROLOL. [Concomitant]
     Active Substance: METOPROLOL
  7. RITUXAN [Concomitant]
     Active Substance: RITUXIMAB
  8. HYDROCODONE [Concomitant]
     Active Substance: HYDROCODONE
  9. TRESIBA [Concomitant]
     Active Substance: INSULIN DEGLUDEC
  10. METOPROLOL TARTRATE. [Concomitant]
     Active Substance: METOPROLOL TARTRATE
  11. RAMPIL [Concomitant]
     Active Substance: RAMIPRIL
  12. JANUMET LONG [Concomitant]
  13. LANSOPRAZOLE. [Concomitant]
     Active Substance: LANSOPRAZOLE
  14. ATORVASTATIN [Concomitant]
     Active Substance: ATORVASTATIN

REACTIONS (1)
  - Gastric disorder [Unknown]
